FAERS Safety Report 11651826 (Version 1)
Quarter: 2015Q4

REPORT INFORMATION
  Report Type: Spontaneous
  Country: US (occurrence: US)
  Receive Date: 20151022
  Receipt Date: 20151022
  Transmission Date: 20160304
  Serious: No
  Sender: FDA-Public Use
  Company Number: US-JNJFOC-20151005466

PATIENT
  Age: 30 Year
  Sex: Female
  Weight: 49.9 kg

DRUGS (1)
  1. SIMPONI [Suspect]
     Active Substance: GOLIMUMAB
     Indication: COLITIS ULCERATIVE
     Route: 058
     Dates: start: 2014

REACTIONS (3)
  - Drug dose omission [Not Recovered/Not Resolved]
  - Accidental exposure to product [Recovered/Resolved]
  - Device malfunction [Unknown]

NARRATIVE: CASE EVENT DATE: 20151001
